FAERS Safety Report 4822997-8 (Version None)
Quarter: 2005Q4

REPORT INFORMATION
  Report Type: 
  Country: None (occurrence: None)
  Receive Date: 20051108
  Receipt Date: 20051027
  Transmission Date: 20060501
  Serious: Yes (Hospitalization)
  Sender: FDA-Public Use
  Company Number: SE-JNJFOC-20050806426

PATIENT
  Age: 30 Year
  Sex: Female

DRUGS (6)
  1. CONCERTA [Suspect]
     Route: 048
  2. CONCERTA [Suspect]
     Route: 048
  3. CONCERTA [Suspect]
     Route: 048
  4. CONCERTA [Suspect]
     Route: 048
  5. EFFEXOR XR [Interacting]
     Indication: DRUG USE FOR UNKNOWN INDICATION
     Route: 048
  6. BURONIL [Interacting]
     Indication: DRUG USE FOR UNKNOWN INDICATION
     Route: 048

REACTIONS (3)
  - CARDIAC FAILURE [None]
  - CARDIOMYOPATHY [None]
  - DRUG INTERACTION [None]
